FAERS Safety Report 4934778-5 (Version None)
Quarter: 2006Q1

REPORT INFORMATION
  Report Type: 
  Country: None (occurrence: None)
  Receive Date: 20060307
  Receipt Date: 20050414
  Transmission Date: 20060701
  Serious: Yes (Hospitalization, Other)
  Sender: FDA-Public Use
  Company Number: US-MERCK-0504USA02464

PATIENT
  Age: 67 Year
  Sex: Male
  Weight: 74 kg

DRUGS (2)
  1. VIOXX [Suspect]
     Indication: ARTHRALGIA
     Route: 048
     Dates: start: 20010201, end: 20040927
  2. ASPIRIN [Concomitant]
     Route: 065

REACTIONS (5)
  - CARDIAC DISORDER [None]
  - CARDIOVASCULAR DISORDER [None]
  - CHEST PAIN [None]
  - CORONARY ARTERY DISEASE [None]
  - THROMBOSIS [None]
